FAERS Safety Report 9094115 (Version 3)
Quarter: 2014Q3

REPORT INFORMATION
  Report Type: Spontaneous
  Country: US (occurrence: None)
  Receive Date: 20130122
  Receipt Date: 20140819
  Transmission Date: 20150326
  Serious: Yes (Other)
  Sender: FDA-Public Use
  Company Number: JPI-P-026852

PATIENT
  Age: 53 Year
  Sex: Male
  Weight: 68.9 kg

DRUGS (13)
  1. XYREM [Suspect]
     Active Substance: SODIUM OXYBATE
     Indication: NARCOLEPSY
     Dosage: (1.5 MG, 2 IN 1 D)
     Route: 048
     Dates: start: 200906, end: 2009
  2. DIVALPROEX SODIUM  (VALPROATE SEMISODIUM) [Concomitant]
  3. LACOSAMIDE [Concomitant]
     Active Substance: LACOSAMIDE
  4. MIRTAZAPINE. [Concomitant]
     Active Substance: MIRTAZAPINE
  5. LEVOTHYROXINE SODIUM. [Concomitant]
     Active Substance: LEVOTHYROXINE SODIUM
  6. TESTOSTERONE. [Concomitant]
     Active Substance: TESTOSTERONE
  7. DEPAKOTE [Concomitant]
     Active Substance: DIVALPROEX SODIUM
  8. QUETIAPINE FUMARATE. [Concomitant]
     Active Substance: QUETIAPINE FUMARATE
  9. AMPHETAMINE, DEXTROAMPHETAMINE MIXED SALTS (AMFETAMINE ASPARTATE, AMFETAMINE SULFATE, DEXAMFETAMINE SACCHARATE, DEXAMFETAMINE SULFATE) [Concomitant]
  10. XYREM [Suspect]
     Active Substance: SODIUM OXYBATE
     Indication: CATAPLEXY
     Dosage: (1.5 MG, 2 IN 1 D)
     Route: 048
     Dates: start: 200906, end: 2009
  11. CLONAZEPAM. [Concomitant]
     Active Substance: CLONAZEPAM
  12. PROVIGIL [Concomitant]
     Active Substance: MODAFINIL
  13. OXYCOCET (OXYCODONE HYDROCHLORIDE, PARACETAMOL) [Concomitant]

REACTIONS (44)
  - Head injury [None]
  - Concussion [None]
  - Vision blurred [None]
  - Pain in extremity [None]
  - Nausea [None]
  - Lip injury [None]
  - Wrong technique in drug usage process [None]
  - Euphoric mood [None]
  - Back pain [None]
  - Depression [None]
  - Somnolence [None]
  - Speech disorder [None]
  - Anxiety [None]
  - Coordination abnormal [None]
  - Dizziness [None]
  - Ataxia [None]
  - Abasia [None]
  - Muscle spasms [None]
  - Sudden onset of sleep [None]
  - Amnesia [None]
  - Asthenia [None]
  - Joint stiffness [None]
  - Gait disturbance [None]
  - Insomnia [None]
  - Cognitive disorder [None]
  - Drug ineffective [None]
  - Fatigue [None]
  - Neck pain [None]
  - Hypoaesthesia [None]
  - Paraesthesia [None]
  - Nervousness [None]
  - Stress [None]
  - Loss of consciousness [None]
  - Post concussion syndrome [None]
  - Weight decreased [None]
  - Headache [None]
  - Myalgia [None]
  - Arthralgia [None]
  - Joint swelling [None]
  - Tremor [None]
  - Hallucination [None]
  - Craniocerebral injury [None]
  - Condition aggravated [None]
  - Fall [None]

NARRATIVE: CASE EVENT DATE: 20091223
